FAERS Safety Report 7053382-9 (Version None)
Quarter: 2010Q4

REPORT INFORMATION
  Report Type: 
  Country: None (occurrence: None)
  Receive Date: 20101014
  Receipt Date: 20101006
  Transmission Date: 20110411
  Serious: Yes (Other)
  Sender: FDA-Public Use
  Company Number: 2009SP037771

PATIENT
  Sex: Female
  Weight: 57.5 kg

DRUGS (1)
  1. IMPLANON [Suspect]
     Indication: PRODUCT USED FOR UNKNOWN INDICATION
     Dosage: 1 DF;
     Dates: start: 20070122

REACTIONS (4)
  - COMPLICATION OF DEVICE REMOVAL [None]
  - PARAESTHESIA [None]
  - PARALYSIS [None]
  - PROCEDURAL COMPLICATION [None]
